FAERS Safety Report 7491451-X (Version None)
Quarter: 2011Q2

REPORT INFORMATION
  Report Type: 
  Country: None (occurrence: None)
  Receive Date: 20110519
  Receipt Date: 20110512
  Transmission Date: 20111010
  Serious: Yes (Hospitalization)
  Sender: FDA-Public Use
  Company Number: PHHO2011US07704

PATIENT
  Sex: Male
  Weight: 97 kg

DRUGS (9)
  1. ZOLEDRONIC ACID [Suspect]
     Indication: PROSTATE CANCER
     Dosage: 4MG ONCE A MONTH
     Route: 042
     Dates: start: 20101012
  2. VITAMIN D [Concomitant]
  3. VICODIN [Concomitant]
  4. MULTI-VITAMINS [Concomitant]
  5. TRILIPIX [Concomitant]
  6. CALCIUM CARBONATE [Concomitant]
  7. LUPRON [Concomitant]
  8. MS CONTIN [Concomitant]
  9. ZOLEDRONIC ACID [Suspect]
     Dosage: 4MG ONCE A MONTH
     Route: 042
     Dates: start: 20110222

REACTIONS (5)
  - ARRHYTHMIA [None]
  - VOMITING [None]
  - NAUSEA [None]
  - ABDOMINAL PAIN [None]
  - ABDOMINAL DISTENSION [None]
